FAERS Safety Report 5273486-0 (Version None)
Quarter: 2007Q1

REPORT INFORMATION
  Report Type: 
  Country: None (occurrence: None)
  Receive Date: 20061219
  Receipt Date: 20060927
  Transmission Date: 20070707
  Serious: Yes (Hospitalization, Other)
  Sender: FDA-Public Use
  Company Number: US-JNJFOC-20060604126

PATIENT
  Age: 38 Year
  Sex: Female
  Weight: 67.586 kg

DRUGS (4)
  1. ORTHO EVRA [Suspect]
     Indication: MENORRHAGIA
     Dosage: TRANSDERMAL
     Route: 062
     Dates: start: 20040226, end: 20040301
  2. ORAL CONTRACEPTIVE (ORAL CONTRACEPTIVE NOS) [Suspect]
     Indication: VAGINAL HAEMORRHAGE
     Dosage: ORAL
     Route: 048
     Dates: start: 20040301
  3. NIFEREX (POLYSACCHARIDE-IRON COMPLEX) [Concomitant]
  4. MULTIVITAMIN [Concomitant]

REACTIONS (3)
  - MYOCARDIAL INFARCTION [None]
  - THROMBOSIS [None]
  - VAGINAL HAEMORRHAGE [None]
